FAERS Safety Report 7737840-7 (Version None)
Quarter: 2011Q3

REPORT INFORMATION
  Report Type: 
  Country: None (occurrence: None)
  Receive Date: 20110908
  Receipt Date: 20110831
  Transmission Date: 20111222
  Serious: Yes (Other)
  Sender: FDA-Public Use
  Company Number: PHHY2011BR77523

PATIENT
  Sex: Male

DRUGS (1)
  1. TEGRETOL-XR [Suspect]
     Indication: BIPOLAR DISORDER
     Dosage: 2 DF, BID
     Route: 048

REACTIONS (5)
  - PAIN [None]
  - HYPOKINESIA [None]
  - OEDEMA PERIPHERAL [None]
  - DIARRHOEA [None]
  - GOUT [None]
